FAERS Safety Report 10522802 (Version 2)
Quarter: 2015Q1

REPORT INFORMATION
  Report Type: Report from Study
  Country: US (occurrence: US)
  Receive Date: 20141016
  Receipt Date: 20150320
  Transmission Date: 20150720
  Serious: Yes (Hospitalization)
  Sender: FDA-Public Use
  Company Number: US-TARO-2014TAR00457

PATIENT
  Age: 75 Year
  Sex: Male

DRUGS (6)
  1. HYDROCHLOROTHIAZIDE. [Concomitant]
     Active Substance: HYDROCHLOROTHIAZIDE
     Dosage: 12.5 MG, 1X/DAY
     Route: 048
     Dates: start: 1997
  2. FLUTICASONE PROPIONATE. [Concomitant]
     Active Substance: FLUTICASONE PROPIONATE
     Dosage: 15 ?G, AS NEEDED
     Dates: start: 20140614, end: 20140726
  3. FINASTERIDE. [Concomitant]
     Active Substance: FINASTERIDE
     Dosage: 5 MG, 1X/DAY
     Route: 048
     Dates: start: 1999
  4. ALDARA [Suspect]
     Active Substance: IMIQUIMOD
     Indication: ACTINIC KERATOSIS
     Dosage: 1 DOSAGE UNITS, 2X/WEEK
     Route: 061
     Dates: start: 20140421, end: 20140804
  5. LISINOPRIL. [Concomitant]
     Active Substance: LISINOPRIL
     Dosage: 40 MG, 1X/DAY
     Route: 048
     Dates: start: 1997, end: 20140805
  6. ASPIRIN. [Concomitant]
     Active Substance: ASPIRIN
     Dosage: 81 MG, 1X/DAY
     Route: 048
     Dates: start: 1997

REACTIONS (2)
  - Sinusitis [None]
  - Mesothelioma [Recovered/Resolved]

NARRATIVE: CASE EVENT DATE: 20140917
